FAERS Safety Report 4351980-4 (Version None)
Quarter: 2004Q2

REPORT INFORMATION
  Report Type: 
  Country: None (occurrence: None)
  Receive Date: 20040429
  Receipt Date: 20040122
  Transmission Date: 20050107
  Serious: No
  Sender: FDA-Public Use
  Company Number: 2004-112748-NL

PATIENT
  Age: 43 Year
  Sex: Female
  Weight: 70.3 kg

DRUGS (3)
  1. NUVARING [Suspect]
     Indication: ALOPECIA
     Dosage: DF DAILY VAGINAL
     Route: 067
     Dates: start: 20040111
  2. RETIN-A ^JANSSEN-CILAG^ [Concomitant]
  3. SYNTHROID [Concomitant]

REACTIONS (4)
  - ACNE CYSTIC [None]
  - DRY SKIN [None]
  - FEELING JITTERY [None]
  - ROSACEA [None]
